FAERS Safety Report 20823516 (Version 3)
Quarter: 2022Q3

REPORT INFORMATION
  Report Type: Report from Study
  Country: CA (occurrence: CA)
  Receive Date: 20220513
  Receipt Date: 20220817
  Transmission Date: 20221027
  Serious: Yes (Other)
  Sender: FDA-Public Use
  Company Number: CA-JNJFOC-20220512514

PATIENT
  Age: 11 Year
  Sex: Male
  Weight: 38 kg

DRUGS (4)
  1. REMICADE [Suspect]
     Active Substance: INFLIXIMAB
     Indication: Crohn^s disease
     Dosage: RE-INDUCTION. THERAPY START DATE ALSO REPORTED AS 12-MAY-2022
     Route: 041
     Dates: start: 20220413
  2. REMICADE [Suspect]
     Active Substance: INFLIXIMAB
     Dosage: DOSE INCREASED TO 300MG AT WEEK 6 THEN EVERY 8 WEEKS FOR SYMPTOM CONTROL.
     Route: 041
     Dates: start: 2022
  3. REMICADE [Suspect]
     Active Substance: INFLIXIMAB
     Route: 041
     Dates: start: 20220707
  4. REMICADE [Suspect]
     Active Substance: INFLIXIMAB
     Dosage: ON 11-AUG-2022 PATIENT RECEIVED 4TH INFLIXIMAB RECOMBINANT INFUSION OF 400MG AND PARTIAL HARVEY-BRAD
     Route: 041
     Dates: start: 2022

REACTIONS (1)
  - Crohn^s disease [Not Recovered/Not Resolved]

NARRATIVE: CASE EVENT DATE: 20220101
